FAERS Safety Report 18230311 (Version 2)
Quarter: 2022Q4

REPORT INFORMATION
  Report Type: Spontaneous
  Country: FR (occurrence: FR)
  Receive Date: 20200904
  Receipt Date: 20221022
  Transmission Date: 20230112
  Serious: Yes (Life-Threatening, Hospitalization, Other)
  Sender: FDA-Public Use
  Company Number: FR-MLMSERVICE-20200727-2401038-1

PATIENT
  Age: 62 Year
  Sex: Male

DRUGS (27)
  1. BISOPROLOL [Interacting]
     Active Substance: BISOPROLOL
     Indication: Hypertension
     Dosage: UNK
     Route: 065
  2. CHLORHEXIDINE [Interacting]
     Active Substance: CHLORHEXIDINE
     Indication: Anti-infective therapy
     Dosage: UNK
     Route: 065
  3. CHLORHEXIDINE [Interacting]
     Active Substance: CHLORHEXIDINE
     Indication: Sterilisation
  4. EPINEPHRINE [Interacting]
     Active Substance: EPINEPHRINE
     Indication: Resuscitation
     Dosage: UNK
     Route: 065
  5. EPINEPHRINE [Interacting]
     Active Substance: EPINEPHRINE
     Indication: Anaphylactic shock
  6. NOREPINEPHRINE [Interacting]
     Active Substance: NOREPINEPHRINE
     Indication: Resuscitation
     Dosage: UNK
     Route: 065
  7. NOREPINEPHRINE [Interacting]
     Active Substance: NOREPINEPHRINE
     Indication: Anaphylactic shock
  8. LACTATED RINGERS SOLUTION [Suspect]
     Active Substance: CALCIUM CHLORIDE\POTASSIUM CHLORIDE\SODIUM CHLORIDE\SODIUM LACTATE
     Indication: Product used for unknown indication
     Dosage: UNK
     Route: 065
  9. LACTATED RINGERS SOLUTION [Suspect]
     Active Substance: CALCIUM CHLORIDE\POTASSIUM CHLORIDE\SODIUM CHLORIDE\SODIUM LACTATE
     Indication: Sterilisation
  10. BISACODYL [Concomitant]
     Active Substance: BISACODYL
     Indication: Bowel preparation
     Dosage: UNK
     Route: 048
  11. BISOPROLOL [Concomitant]
     Active Substance: BISOPROLOL
     Indication: Hypertension
     Dosage: UNK
     Route: 065
  12. CEFOXITIN [Concomitant]
     Active Substance: CEFOXITIN SODIUM
     Indication: Anaesthesia
     Dosage: 2 GRAM (INFUSED WITH RINGER?S LACTATE)
     Route: 065
  13. CEFOXITIN [Concomitant]
     Active Substance: CEFOXITIN SODIUM
     Indication: Antibiotic prophylaxis
  14. CEFOXITIN [Concomitant]
     Active Substance: CEFOXITIN SODIUM
     Indication: Infusion
  15. CISATRACURIUM [Concomitant]
     Active Substance: CISATRACURIUM
     Indication: Induction of anaesthesia
     Dosage: 14 MILLIGRAM
     Route: 065
  16. CISATRACURIUM [Concomitant]
     Active Substance: CISATRACURIUM
     Indication: Anaesthesia
  17. DESFLURANE [Concomitant]
     Active Substance: DESFLURANE
     Indication: Maintenance of anaesthesia
     Dosage: UNK
     Route: 065
  18. PROPOFOL [Concomitant]
     Active Substance: PROPOFOL
     Indication: Induction of anaesthesia
     Dosage: 300 MILLIGRAM
     Route: 065
  19. PROPOFOL [Concomitant]
     Active Substance: PROPOFOL
     Indication: Anaesthesia
  20. SUFENTANIL [Concomitant]
     Active Substance: SUFENTANIL
     Indication: Induction of anaesthesia
     Dosage: 20 MICROGRAM
     Route: 065
  21. SUFENTANIL [Concomitant]
     Active Substance: SUFENTANIL
     Indication: Anaesthesia
  22. SODIUM LACTATE [Concomitant]
     Active Substance: SODIUM LACTATE
     Indication: Infusion
     Dosage: UNK
     Route: 065
  23. CALCIUM [Concomitant]
     Active Substance: CALCIUM
     Indication: Product used for unknown indication
     Dosage: UNK
     Route: 065
  24. AMIODARONE HYDROCHLORIDE [Concomitant]
     Active Substance: AMIODARONE HYDROCHLORIDE
     Indication: Product used for unknown indication
     Dosage: UNK
     Route: 065
  25. MAGNESIUM [Concomitant]
     Active Substance: MAGNESIUM
     Indication: Product used for unknown indication
     Dosage: UNK
     Route: 065
  26. DOBUTAMINE [Concomitant]
     Active Substance: DOBUTAMINE HYDROCHLORIDE
     Indication: Product used for unknown indication
     Dosage: UNK
     Route: 065
  27. ATROPINE SULFATE [Concomitant]
     Active Substance: ATROPINE SULFATE
     Indication: Product used for unknown indication
     Dosage: UNK
     Route: 065

REACTIONS (14)
  - Anaphylactic shock [Unknown]
  - Hypokinesia [Recovered/Resolved]
  - Drug hypersensitivity [Unknown]
  - Bronchospasm [Unknown]
  - Cardiomyopathy [Recovered/Resolved]
  - Hypotension [Unknown]
  - Drug interaction [Unknown]
  - Contraindicated product administered [Unknown]
  - Therapeutic product effect decreased [Unknown]
  - Medication error [Unknown]
  - Hypokalaemia [Unknown]
  - Product use in unapproved indication [Unknown]
  - Pulseless electrical activity [Unknown]
  - Wrong technique in product usage process [Unknown]
